FAERS Safety Report 8793330 (Version 1)
Quarter: 2012Q4

REPORT INFORMATION
  Report Type: 
  Country: US (occurrence: US)
  Receive Date: 20120918
  Receipt Date: 20120918
  Transmission Date: 20130627
  Serious: Yes (Other)
  Sender: FDA-Public Use
  Company Number: PHHY2012US079456

PATIENT
  Age: 61 Year
  Sex: Female

DRUGS (2)
  1. ASCRIPTIN MAXIMUM STRENGTH BUFFERED ASPIRIN [Suspect]
     Indication: PAIN
     Dosage: 2 DF, daily dose
     Route: 048
     Dates: start: 1995, end: 20120910
  2. ASCRIPTIN MAXIMUM STRENGTH BUFFERED ASPIRIN [Suspect]
     Indication: ANTICOAGULANT THERAPY

REACTIONS (10)
  - Cardiac disorder [Unknown]
  - Road traffic accident [Unknown]
  - Neck injury [Unknown]
  - Tooth injury [Unknown]
  - Intervertebral disc protrusion [Not Recovered/Not Resolved]
  - Intervertebral disc disorder [Unknown]
  - Disability [Not Recovered/Not Resolved]
  - Breast mass [Unknown]
  - Face injury [Unknown]
  - Incorrect drug administration duration [Unknown]
